FAERS Safety Report 8549314-4 (Version None)
Quarter: 2012Q3

REPORT INFORMATION
  Report Type: 
  Country: None (occurrence: None)
  Receive Date: 20120720
  Receipt Date: 20120720
  Transmission Date: 20120928
  Serious: Yes (Other)
  Sender: FDA-Public Use
  Company Number: None

PATIENT
  Age: 66 Year
  Sex: Male
  Weight: 81.6475 kg

DRUGS (1)
  1. CRESTOR [Suspect]
     Indication: BLOOD CHOLESTEROL
     Dosage: 1 TABLET DAILY PO
     Route: 048
     Dates: start: 20111022, end: 20120220

REACTIONS (3)
  - MYALGIA [None]
  - ASTHENIA [None]
  - DYSPNOEA [None]
